FAERS Safety Report 5963020-1 (Version None)
Quarter: 2008Q4

REPORT INFORMATION
  Report Type: 
  Country: None (occurrence: None)
  Receive Date: 20081124
  Receipt Date: 20081118
  Transmission Date: 20090506
  Serious: Yes (Other)
  Sender: FDA-Public Use
  Company Number: US-BIOGENIDEC-2008BI017971

PATIENT
  Age: 29 Year
  Sex: Female

DRUGS (3)
  1. AVONEX [Suspect]
     Indication: MULTIPLE SCLEROSIS
     Dosage: BASED ON LMP.
     Route: 030
     Dates: start: 20061220, end: 20080524
  2. DILANTIN [Concomitant]
     Indication: CONVULSION
     Route: 048
     Dates: start: 20080821
  3. GABAPENTIN [Concomitant]
     Indication: PAIN
     Route: 048
     Dates: start: 20070615

REACTIONS (2)
  - PREGNANCY [None]
  - PREMATURE LABOUR [None]
